FAERS Safety Report 26082920 (Version 1)
Quarter: 2025Q4

REPORT INFORMATION
  Report Type: Spontaneous
  Country: EU (occurrence: EU)
  Receive Date: 20251124
  Receipt Date: 20251124
  Transmission Date: 20260118
  Serious: Yes (Other)
  Sender: CHEPLAPHARM
  Company Number: None

PATIENT
  Sex: Female
  Weight: 88 kg

DRUGS (8)
  1. QUETIAPINE [Suspect]
     Active Substance: QUETIAPINE
     Indication: Mood swings
     Route: 048
     Dates: start: 2001, end: 2024
  2. LITHIUM [Suspect]
     Active Substance: LITHIUM
     Indication: Mood swings
     Dates: start: 2001, end: 2015
  3. VALPROATE SODIUM [Suspect]
     Active Substance: VALPROATE SODIUM
     Indication: Hypertriglyceridaemia
     Dosage: FIRST DOSE - TOOK FOUR 500 MG TABLETS PER DAY (TWO IN THE MORNING AND TWO IN THE EVENING)
     Route: 048
     Dates: start: 2001, end: 202507
  4. VALPROATE SODIUM [Suspect]
     Active Substance: VALPROATE SODIUM
     Indication: Mood swings
     Dosage: FIRST DOSE - TOOK FOUR 500 MG TABLETS PER DAY (TWO IN THE MORNING AND TWO IN THE EVENING)
     Route: 048
     Dates: start: 2001, end: 202507
  5. VALPROATE SODIUM [Suspect]
     Active Substance: VALPROATE SODIUM
     Indication: Hypertriglyceridaemia
     Dosage: SECOND DOSE - 2 TABLETS PER DAY OF 500MG ; EXTENDED-RELEASE TABLET?DAILY DOSE: 2 DOSAGE FORM
     Route: 048
     Dates: start: 202507
  6. VALPROATE SODIUM [Suspect]
     Active Substance: VALPROATE SODIUM
     Indication: Mood swings
     Dosage: SECOND DOSE - 2 TABLETS PER DAY OF 500MG ; EXTENDED-RELEASE TABLET?DAILY DOSE: 2 DOSAGE FORM
     Route: 048
     Dates: start: 202507
  7. VALPROATE SODIUM [Suspect]
     Active Substance: VALPROATE SODIUM
     Indication: Hypertriglyceridaemia
     Dosage: FIRST DOSE - TOOK FOUR 500 MG TABLETS PER DAY (TWO IN THE MORNING AND TWO IN THE EVENING)
     Route: 048
  8. VALPROATE SODIUM [Suspect]
     Active Substance: VALPROATE SODIUM
     Indication: Mood swings
     Dosage: FIRST DOSE - TOOK FOUR 500 MG TABLETS PER DAY (TWO IN THE MORNING AND TWO IN THE EVENING)
     Route: 048

REACTIONS (4)
  - Hunger [Not Recovered/Not Resolved]
  - Obesity [Not Recovered/Not Resolved]
  - Psoriasis [Not Recovered/Not Resolved]
  - Diabetes mellitus [Not Recovered/Not Resolved]

NARRATIVE: CASE EVENT DATE: 20010101
